FAERS Safety Report 11030099 (Version 4)
Quarter: 2015Q2

REPORT INFORMATION
  Report Type: Report from Study
  Country: GR (occurrence: GR)
  Receive Date: 20150415
  Receipt Date: 20150501
  Transmission Date: 20150821
  Serious: Yes (Hospitalization, Other)
  Sender: FDA-Public Use
  Company Number: GR-ABBVIE-15P-066-1375165-00

PATIENT
  Age: 81 Year
  Sex: Female

DRUGS (2)
  1. DUODOPA [Suspect]
     Active Substance: CARBIDOPA\LEVODOPA
     Indication: PARKINSON^S DISEASE
     Dosage: MORNING DOSE: 11 ML,CONTINUOUS RATE: 4.3 ML/H,EXTRA DOSE: 2.1 ML
     Route: 050
     Dates: start: 20150316, end: 20150411
  2. MADOPAR [Concomitant]
     Active Substance: BENSERAZIDE HYDROCHLORIDE\LEVODOPA
     Indication: PRODUCT USED FOR UNKNOWN INDICATION
     Dosage: 1/2 FOUR TIMES DAILY WITH WATER
     Route: 065

REACTIONS (9)
  - Device leakage [Recovered/Resolved]
  - Device dislocation [Recovered/Resolved]
  - Abdominal pain [Recovered/Resolved]
  - Localised intraabdominal fluid collection [Recovered/Resolved]
  - Device kink [Recovered/Resolved]
  - Stoma site irritation [Unknown]
  - Cyst [Recovered/Resolved]
  - Constipation [Unknown]
  - Agitation [Unknown]

NARRATIVE: CASE EVENT DATE: 201504
